FAERS Safety Report 23509679 (Version 1)
Quarter: 2024Q1

REPORT INFORMATION
  Report Type: Spontaneous
  Country: GB (occurrence: GB)
  Receive Date: 20240210
  Receipt Date: 20240210
  Transmission Date: 20240410
  Serious: Yes (Other)
  Sender: FDA-Public Use
  Company Number: GB-MHRA-TPP4723606C9350640YC1664366031117

PATIENT
  Age: 18 Year
  Sex: Male
  Weight: 59 kg

DRUGS (3)
  1. ERYTHROMYCIN [Suspect]
     Active Substance: ERYTHROMYCIN
     Indication: Ill-defined disorder
     Dosage: 500 MILLIGRAM FOR 7 DAYS
     Route: 065
     Dates: start: 20220928
  2. CLARITHROMYCIN [Concomitant]
     Active Substance: CLARITHROMYCIN
     Indication: Ill-defined disorder
     Dosage: 1 DOSAGE FORM, TWO TIMES A DAY (~TAKE ONE EVERY 12 HRS  )
     Route: 065
     Dates: start: 20220822
  3. ERYTHROMYCIN [Concomitant]
     Active Substance: ERYTHROMYCIN
     Indication: Ill-defined disorder
     Dosage: 2 DOSAGE FORM, FOUR TIMES/DAY (TAKE TWO TABLETS FOUR TIMES A DAY FOR 7 DAYS)
     Route: 065
     Dates: start: 20220922

REACTIONS (5)
  - Vomiting [Unknown]
  - Muscle spasms [Unknown]
  - Abdominal pain upper [Unknown]
  - Hypoaesthesia [Unknown]
  - Limb discomfort [Unknown]

NARRATIVE: CASE EVENT DATE: 20220928
